FAERS Safety Report 13510272 (Version 1)
Quarter: 2017Q2

REPORT INFORMATION
  Report Type: Spontaneous
  Country: US (occurrence: US)
  Receive Date: 20170503
  Receipt Date: 20170503
  Transmission Date: 20170830
  Serious: No
  Sender: FDA-Public Use
  Company Number: US-TARO-2016TAR00387

PATIENT
  Sex: Male

DRUGS (1)
  1. CLINDAMYCIN PHOSPHATE TOPICAL SOLUTION USP 1% [Suspect]
     Active Substance: CLINDAMYCIN PHOSPHATE

REACTIONS (2)
  - Product quality issue [Unknown]
  - Condition aggravated [Unknown]
